FAERS Safety Report 26005052 (Version 1)
Quarter: 2025Q4

REPORT INFORMATION
  Report Type: Spontaneous
  Country: AU (occurrence: AU)
  Receive Date: 20251106
  Receipt Date: 20251106
  Transmission Date: 20260117
  Serious: Yes (Other)
  Sender: TEVA
  Company Number: AU-TEVA-VS-3387941

PATIENT
  Age: 72 Year
  Sex: Male

DRUGS (3)
  1. ACITRETIN [Suspect]
     Active Substance: ACITRETIN
     Indication: Pityriasis rubra pilaris
     Route: 065
  2. ADALIMUMAB [Suspect]
     Active Substance: ADALIMUMAB
     Indication: Pityriasis rubra pilaris
     Route: 065
  3. METHOTREXATE [Suspect]
     Active Substance: METHOTREXATE
     Indication: Pityriasis rubra pilaris
     Route: 065

REACTIONS (2)
  - Cardiac failure congestive [Unknown]
  - Drug ineffective [Unknown]
